FAERS Safety Report 14291857 (Version 1)
Quarter: 2017Q4

REPORT INFORMATION
  Report Type: Spontaneous
  Country: US (occurrence: US)
  Receive Date: 20171215
  Receipt Date: 20171215
  Transmission Date: 20180321
  Serious: Yes (Hospitalization)
  Sender: FDA-Public Use
  Company Number: US-SAOL THERAPEUTICS-2017SAO03468

PATIENT
  Sex: Female

DRUGS (3)
  1. BACLOFEN. [Suspect]
     Active Substance: BACLOFEN
     Indication: MUSCLE SPASTICITY
     Dosage: UNK ?G, \DAY
     Route: 037
  2. UNSPECIFIED MEDICATION [Suspect]
     Active Substance: UNSPECIFIED INGREDIENT
     Route: 037
  3. MORPHINE [Suspect]
     Active Substance: MORPHINE
     Dosage: UNK MG, \DAY
     Route: 037

REACTIONS (4)
  - Respiratory arrest [Recovered/Resolved]
  - Blood pressure increased [Unknown]
  - Somnolence [Unknown]
  - Throat tightness [Recovered/Resolved]
